FAERS Safety Report 8510672-8 (Version None)
Quarter: 2012Q3

REPORT INFORMATION
  Report Type: 
  Country: None (occurrence: None)
  Receive Date: 20120709
  Receipt Date: 20120709
  Transmission Date: 20120928
  Serious: Yes (Disabling)
  Sender: FDA-Public Use
  Company Number: None

PATIENT
  Age: 57 Year
  Sex: Female
  Weight: 61.2356 kg

DRUGS (2)
  1. CYMBALTA [Suspect]
  2. CYMBALTA [Suspect]
     Indication: FIBROMYALGIA
     Dates: start: 20110823, end: 20111130

REACTIONS (7)
  - DYSKINESIA [None]
  - DRUG DEPENDENCE [None]
  - MUSCLE TWITCHING [None]
  - FALL [None]
  - LOSS OF CONTROL OF LEGS [None]
  - HYPOAESTHESIA [None]
  - NERVOUS SYSTEM DISORDER [None]
